FAERS Safety Report 10582868 (Version 5)
Quarter: 2014Q4

REPORT INFORMATION
  Report Type: Report from Study
  Country: ES (occurrence: ES)
  Receive Date: 20141114
  Receipt Date: 20141217
  Transmission Date: 20150529
  Serious: Yes (Life-Threatening, Hospitalization)
  Sender: FDA-Public Use
  Company Number: ES-ROCHE-1490553

PATIENT
  Age: 58 Year
  Sex: Male
  Weight: 63 kg

DRUGS (23)
  1. OBINUTUZUMAB [Suspect]
     Active Substance: OBINUTUZUMAB
     Dosage: C5D1?FREQUENCY AS PER PROTOCOL: DAYS 1/2, 8 AND 15 OF CYCLE 1 AND DAY 1 ON CYCLES 2-6?MOST RECENT DO
     Route: 042
     Dates: start: 20141015, end: 20141015
  2. CYCLOPHOSPHAMIDE. [Suspect]
     Active Substance: CYCLOPHOSPHAMIDE
     Dosage: C2D1
     Route: 048
     Dates: start: 20140715, end: 20140717
  3. FLUDARABINE [Suspect]
     Active Substance: FLUDARABINE PHOSPHATE
     Indication: CHRONIC LYMPHOCYTIC LEUKAEMIA
     Dosage: C1D1
     Route: 048
     Dates: start: 20140613, end: 20140613
  4. CYCLOPHOSPHAMIDE. [Suspect]
     Active Substance: CYCLOPHOSPHAMIDE
     Indication: CHRONIC LYMPHOCYTIC LEUKAEMIA
     Dosage: C1D1
     Route: 048
     Dates: start: 20140613, end: 20140615
  5. METOCLOPRAMIDE. [Concomitant]
     Active Substance: METOCLOPRAMIDE
     Indication: PROPHYLAXIS
     Route: 048
     Dates: start: 20140612
  6. FLUDARABINE [Suspect]
     Active Substance: FLUDARABINE PHOSPHATE
     Dosage: C4D1
     Route: 048
     Dates: start: 20140916, end: 20140916
  7. CYCLOPHOSPHAMIDE. [Suspect]
     Active Substance: CYCLOPHOSPHAMIDE
     Dosage: C3D1
     Route: 048
     Dates: start: 20140812, end: 20140812
  8. ACYCLOVIR. [Concomitant]
     Active Substance: ACYCLOVIR
     Indication: PROPHYLAXIS
     Route: 048
     Dates: start: 20140612
  9. OMEPRAZOL [Concomitant]
     Active Substance: OMEPRAZOLE
     Indication: PROPHYLAXIS
     Route: 048
     Dates: start: 20140612
  10. FLUDARABINE [Suspect]
     Active Substance: FLUDARABINE PHOSPHATE
     Dosage: C5D1?MOST RECENT DOSE PRIOR TO EVENT: 15/OCT/2014?TEMPORARILY INTERRUPTED: 10/NOV/2014
     Route: 048
     Dates: start: 20141015, end: 20141015
  11. CYCLOPHOSPHAMIDE. [Suspect]
     Active Substance: CYCLOPHOSPHAMIDE
     Dosage: C5D1?MOST RECENT DOSE PRIOR TO EVENT: 15/OCT/2014?TEMPORARILY INTERRUPTED: 10/NOV/2014
     Route: 048
     Dates: start: 20141015, end: 20141015
  12. OBINUTUZUMAB [Suspect]
     Active Substance: OBINUTUZUMAB
     Dosage: C2D1
     Route: 042
     Dates: start: 20140715, end: 20140715
  13. FLUDARABINE [Suspect]
     Active Substance: FLUDARABINE PHOSPHATE
     Dosage: C3D1
     Route: 048
     Dates: start: 20140812, end: 20140812
  14. SULFAMETHOXAZOLE/TRIMETHOPRIM [Concomitant]
     Active Substance: SULFAMETHOXAZOLE\TRIMETHOPRIM
     Indication: PROPHYLAXIS
     Route: 048
     Dates: start: 20140612
  15. OBINUTUZUMAB [Suspect]
     Active Substance: OBINUTUZUMAB
     Dosage: C1D8
     Route: 042
     Dates: start: 20140620, end: 20140620
  16. OBINUTUZUMAB [Suspect]
     Active Substance: OBINUTUZUMAB
     Dosage: C1D15
     Route: 042
     Dates: start: 20140703, end: 20140703
  17. OBINUTUZUMAB [Suspect]
     Active Substance: OBINUTUZUMAB
     Dosage: C3D1
     Route: 042
     Dates: start: 20140812, end: 20140812
  18. OBINUTUZUMAB [Suspect]
     Active Substance: OBINUTUZUMAB
     Indication: CHRONIC LYMPHOCYTIC LEUKAEMIA
     Dosage: C1D1
     Route: 042
     Dates: start: 20140612, end: 20140612
  19. OBINUTUZUMAB [Suspect]
     Active Substance: OBINUTUZUMAB
     Dosage: C1D2
     Route: 042
     Dates: start: 20140613, end: 20140613
  20. OBINUTUZUMAB [Suspect]
     Active Substance: OBINUTUZUMAB
     Dosage: C4D1
     Route: 042
     Dates: start: 20140916, end: 20140916
  21. FLUDARABINE [Suspect]
     Active Substance: FLUDARABINE PHOSPHATE
     Dosage: C2D1
     Route: 048
     Dates: start: 20140715, end: 20140717
  22. CYCLOPHOSPHAMIDE. [Suspect]
     Active Substance: CYCLOPHOSPHAMIDE
     Dosage: C4D1
     Route: 048
     Dates: start: 20140916, end: 20140916
  23. ALLOPURINOL. [Concomitant]
     Active Substance: ALLOPURINOL
     Indication: PROPHYLAXIS
     Route: 048
     Dates: start: 20140612

REACTIONS (1)
  - Neutropenic sepsis [Recovered/Resolved]

NARRATIVE: CASE EVENT DATE: 20141110
